FAERS Safety Report 7713858-5 (Version None)
Quarter: 2011Q3

REPORT INFORMATION
  Report Type: 
  Country: None (occurrence: None)
  Receive Date: 20110826
  Receipt Date: 20110817
  Transmission Date: 20111222
  Serious: Yes (Hospitalization, Other)
  Sender: FDA-Public Use
  Company Number: US-ELI_LILLY_AND_COMPANY-US201108005707

PATIENT
  Sex: Female

DRUGS (3)
  1. LANTUS [Concomitant]
     Dosage: UNK
  2. HUMALOG [Suspect]
     Dosage: UNK, UNKNOWN
  3. HUMALOG [Suspect]
     Indication: DIABETES MELLITUS
     Dosage: UNK, UNKNOWN

REACTIONS (6)
  - BLINDNESS UNILATERAL [None]
  - EYE HAEMORRHAGE [None]
  - BLOOD GLUCOSE DECREASED [None]
  - HYPOGLYCAEMIA UNAWARENESS [None]
  - ARTHROPATHY [None]
  - DIALYSIS [None]
